FAERS Safety Report 24370521 (Version 1)
Quarter: 2024Q3

REPORT INFORMATION
  Report Type: Spontaneous
  Country: RO (occurrence: RO)
  Receive Date: 20240927
  Receipt Date: 20240927
  Transmission Date: 20241017
  Serious: Yes (Hospitalization)
  Sender: BOEHRINGER INGELHEIM
  Company Number: RO-BoehringerIngelheim-2024-BI-053384

PATIENT
  Age: 68 Year
  Sex: Female

DRUGS (2)
  1. OFEV [Suspect]
     Active Substance: NINTEDANIB
     Indication: Scleroderma
     Dates: start: 20240822
  2. OFEV [Suspect]
     Active Substance: NINTEDANIB
     Indication: Traumatic lung injury

REACTIONS (1)
  - Enzyme abnormality [Unknown]

NARRATIVE: CASE EVENT DATE: 20240924
